FAERS Safety Report 19039696 (Version 2)
Quarter: 2021Q2

REPORT INFORMATION
  Report Type: Spontaneous
  Country: US (occurrence: US)
  Receive Date: 20210322
  Receipt Date: 20210423
  Transmission Date: 20210717
  Serious: No
  Sender: FDA-Public Use
  Company Number: US-TEVA-2021-US-1890145

PATIENT
  Age: 76 Year
  Sex: Male

DRUGS (1)
  1. BUTALBITAL, ACETAMINOPHEN, AND CAFFEINE TEVA [Suspect]
     Active Substance: ACETAMINOPHEN\BUTALBITAL\CAFFEINE
     Indication: HEADACHE
     Dosage: 50 MG/ 325 MG/ 40 MG
     Route: 065
     Dates: start: 2020

REACTIONS (2)
  - Drug ineffective [Unknown]
  - Product quality issue [Unknown]
